FAERS Safety Report 10062176 (Version 1)
Quarter: 2014Q2

REPORT INFORMATION
  Report Type: Spontaneous
  Country: FI (occurrence: FI)
  Receive Date: 20140407
  Receipt Date: 20140407
  Transmission Date: 20141212
  Serious: Yes (Other)
  Sender: FDA-Public Use
  Company Number: FI-PFIZER INC-2014092165

PATIENT
  Age: 43 Year
  Sex: Male

DRUGS (3)
  1. CHAMPIX [Suspect]
     Indication: SMOKING CESSATION THERAPY
     Dosage: UNK
     Dates: end: 2010
  2. ATACAND [Concomitant]
     Indication: HYPERTENSION
     Dosage: 16 MG, 1X/DAY
  3. BISOPROLOL [Concomitant]
     Indication: HYPERTENSION
     Dosage: 10 MG, 1X/DAY

REACTIONS (3)
  - Intermittent claudication [Recovered/Resolved]
  - Blood pressure increased [Unknown]
  - Confusional state [Unknown]
